FAERS Safety Report 9767433 (Version 1)
Quarter: 2013Q4

REPORT INFORMATION
  Report Type: Report from Study
  Country: JP (occurrence: JP)
  Receive Date: 20131217
  Receipt Date: 20131217
  Transmission Date: 20140711
  Serious: Yes (Other)
  Sender: FDA-Public Use
  Company Number: PHHY2013JP146509

PATIENT
  Age: 34 Year
  Sex: Female

DRUGS (9)
  1. FTY 720 [Suspect]
     Indication: MULTIPLE SCLEROSIS
     Dosage: 0.5 MG, QD
     Route: 048
     Dates: start: 20121113
  2. TRYPTANOL//AMITRIPTYLINE PAMOATE [Concomitant]
     Dosage: 20 MG, DAILY
     Route: 048
     Dates: start: 20120709, end: 20130220
  3. RIVOTRIL [Concomitant]
     Dosage: 1 MG, DAILY
     Route: 048
     Dates: start: 20120709
  4. TRAMCET [Concomitant]
     Dosage: 2 DF, DAILY
     Route: 048
     Dates: start: 20120825
  5. GABAPEN [Concomitant]
     Dosage: 1200 MG, DAILY
     Route: 048
     Dates: start: 20130221
  6. SOLU MEDROL [Concomitant]
     Dosage: 1000 MG, DAILY
     Dates: start: 20130627, end: 20130629
  7. FAMPRIDINE [Concomitant]
     Route: 048
     Dates: start: 20131105
  8. CELECOX [Concomitant]
     Route: 048
  9. SODIUM HYALURONATE [Concomitant]
     Route: 051

REACTIONS (3)
  - Cervix carcinoma [Recovered/Resolved]
  - Pyrexia [Recovered/Resolved]
  - Headache [Recovered/Resolved]
